FAERS Safety Report 24391150 (Version 1)
Quarter: 2024Q4

REPORT INFORMATION
  Report Type: Spontaneous
  Country: DE (occurrence: DE)
  Receive Date: 20241003
  Receipt Date: 20241003
  Transmission Date: 20250115
  Serious: Yes (Other)
  Sender: DR REDDYS
  Company Number: DE-GERMAN-LIT/DEU/24/0014364

PATIENT
  Age: 54 Year
  Sex: Male

DRUGS (2)
  1. BENDAMUSTINE [Suspect]
     Active Substance: BENDAMUSTINE
     Indication: Follicular lymphoma
  2. OBINUTUZUMAB [Suspect]
     Active Substance: OBINUTUZUMAB
     Indication: Follicular lymphoma

REACTIONS (2)
  - Malignant neoplasm progression [Unknown]
  - Drug ineffective [Unknown]
